FAERS Safety Report 13452794 (Version 3)
Quarter: 2018Q1

REPORT INFORMATION
  Report Type: Report from Study
  Country: US (occurrence: US)
  Receive Date: 20170418
  Receipt Date: 20180103
  Transmission Date: 20180508
  Serious: Yes (Hospitalization, Other)
  Sender: FDA-Public Use
  Company Number: US-PFIZER INC-2017154983

PATIENT
  Age: 14 Year
  Sex: Female
  Weight: 47 kg

DRUGS (6)
  1. TEMOZOLOMIDE. [Suspect]
     Active Substance: TEMOZOLOMIDE
     Dosage: 30 MG, DAILY DAYS 2-6
     Route: 048
     Dates: start: 20170317, end: 20170321
  2. SEPTRA [Concomitant]
     Active Substance: SULFAMETHOXAZOLE\TRIMETHOPRIM
     Indication: ANTIFUNGAL PROPHYLAXIS
     Dosage: 15 ML, BID MTW
     Route: 048
  3. TALAZOPARIB [Suspect]
     Active Substance: TALAZOPARIB
     Dosage: 850 UG, DAILY DAYS 2-6
     Dates: start: 20170317, end: 20170321
  4. CEFIXIME. [Concomitant]
     Active Substance: CEFIXIME
     Indication: PROPHYLAXIS
     Dosage: 100MG/5ML, BID X 21 DAYS
     Route: 048
  5. IRINOTECAN HCL [Suspect]
     Active Substance: IRINOTECAN HYDROCHLORIDE
     Dosage: 56 MG, DAILY DAYS 2-6
     Route: 042
     Dates: start: 20170317, end: 20170321
  6. TALAZOPARIB [Suspect]
     Active Substance: TALAZOPARIB
     Dosage: 500 UG, BID, DAY1
     Dates: start: 20170316, end: 20170316

REACTIONS (2)
  - Appendicitis [Recovered/Resolved]
  - Febrile neutropenia [Recovered/Resolved]

NARRATIVE: CASE EVENT DATE: 20170325
